FAERS Safety Report 9106146 (Version 3)
Quarter: 2015Q3

REPORT INFORMATION
  Report Type: Spontaneous
  Country: US (occurrence: US)
  Receive Date: 20130220
  Receipt Date: 20150701
  Transmission Date: 20151125
  Serious: Yes (Other)
  Sender: FDA-Public Use
  Company Number: US-ASTRAZENECA-2005UW03825

PATIENT
  Age: 55 Year
  Sex: Female
  Weight: 74.8 kg

DRUGS (63)
  1. ARIMIDEX [Suspect]
     Active Substance: ANASTROZOLE
     Indication: BREAST CANCER STAGE III
     Route: 048
     Dates: start: 2005
  2. NEXIUM [Suspect]
     Active Substance: ESOMEPRAZOLE MAGNESIUM
     Indication: GASTROOESOPHAGEAL REFLUX DISEASE
     Route: 048
     Dates: start: 2002
  3. NEXIUM [Suspect]
     Active Substance: ESOMEPRAZOLE MAGNESIUM
     Indication: DYSPEPSIA
     Dosage: 40 MG DAILY, NEXIUM OTC
     Route: 048
  4. TAMOXIFEN [Suspect]
     Active Substance: TAMOXIFEN
     Route: 048
     Dates: start: 200301
  5. MEGACE [Concomitant]
     Active Substance: MEGESTROL ACETATE
  6. LEXAPRO [Concomitant]
     Active Substance: ESCITALOPRAM OXALATE
  7. MOTRIN [Concomitant]
     Active Substance: IBUPROFEN
  8. VITAMINS [Concomitant]
     Active Substance: VITAMINS
  9. TOPIRAMATE. [Concomitant]
     Active Substance: TOPIRAMATE
     Indication: NEUROPATHY PERIPHERAL
     Route: 065
  10. OXYCODONE [Concomitant]
     Active Substance: OXYCODONE
     Indication: PAIN
     Dosage: AT NIGHT
     Route: 065
     Dates: start: 20150307
  11. XANAX [Concomitant]
     Active Substance: ALPRAZOLAM
  12. BIOTIN [Concomitant]
     Active Substance: BIOTIN
  13. NEXIUM [Suspect]
     Active Substance: ESOMEPRAZOLE MAGNESIUM
     Indication: DYSPEPSIA
     Route: 048
  14. NEXIUM [Suspect]
     Active Substance: ESOMEPRAZOLE MAGNESIUM
     Indication: GASTROOESOPHAGEAL REFLUX DISEASE
     Route: 048
  15. TOPIRAMATE. [Concomitant]
     Active Substance: TOPIRAMATE
     Indication: NEUROPATHY PERIPHERAL
     Route: 065
     Dates: start: 2014
  16. BETHANECHOL CHLORIDE. [Concomitant]
     Active Substance: BETHANECHOL CHLORIDE
  17. GLUCOSAMINE CHONDROITIN PLUS [Concomitant]
  18. CYMBALTA [Concomitant]
     Active Substance: DULOXETINE HYDROCHLORIDE
  19. POTASSIUM [Concomitant]
     Active Substance: POTASSIUM
  20. NEXIUM [Suspect]
     Active Substance: ESOMEPRAZOLE MAGNESIUM
     Indication: DYSPEPSIA
     Route: 048
     Dates: start: 201211
  21. COMPAZINE [Concomitant]
     Active Substance: PROCHLORPERAZINE MALEATE
  22. LEVOTHYROXINE. [Concomitant]
     Active Substance: LEVOTHYROXINE
     Indication: THYROID DISORDER
     Route: 065
  23. 5HTP [Concomitant]
     Indication: MEMORY IMPAIRMENT
     Route: 065
     Dates: start: 2014
  24. GLUCOSAMINE CHONDROITIN PLUS [Concomitant]
  25. GLUCOSAMINE CHONDROITIN PLUS [Concomitant]
  26. VITAMIN B12 [Concomitant]
     Active Substance: CYANOCOBALAMIN
  27. ZONISAMIDE. [Concomitant]
     Active Substance: ZONISAMIDE
  28. MOBIC [Concomitant]
     Active Substance: MELOXICAM
  29. NEXIUM [Suspect]
     Active Substance: ESOMEPRAZOLE MAGNESIUM
     Indication: GASTROOESOPHAGEAL REFLUX DISEASE
     Route: 048
  30. AMBIEN [Concomitant]
     Active Substance: ZOLPIDEM TARTRATE
  31. FERROUS SULFATE [Concomitant]
     Active Substance: FERROUS SULFATE\FERROUS SULFATE, DRIED
  32. ROXICODONE [Concomitant]
     Active Substance: OXYCODONE HYDROCHLORIDE
     Indication: PAIN
  33. ENALAPRIL [Concomitant]
     Active Substance: ENALAPRIL
     Indication: BLOOD PRESSURE ABNORMAL
  34. CHLORTHALIDONE. [Concomitant]
     Active Substance: CHLORTHALIDONE
     Indication: BLOOD PRESSURE ABNORMAL
  35. ARIMIDEX [Suspect]
     Active Substance: ANASTROZOLE
     Indication: BREAST CANCER STAGE III
     Dosage: GENERIC ANASTRAZOLE
     Route: 048
     Dates: start: 2013
  36. COUMADIN [Concomitant]
     Active Substance: WARFARIN SODIUM
  37. LEVOTHYROXINE. [Concomitant]
     Active Substance: LEVOTHYROXINE
     Indication: THYROID DISORDER
     Route: 065
  38. LIOTHYRONINE [Concomitant]
     Active Substance: LIOTHYRONINE
     Indication: THYROID DISORDER
     Dosage: 25 MCG, 1 HALF TABLET EVERY MORNING
     Route: 065
  39. LIOTHYRONINE [Concomitant]
     Active Substance: LIOTHYRONINE
     Indication: THYROID DISORDER
     Route: 065
  40. TETRAHYDROFOL [Concomitant]
  41. SELENIUM [Concomitant]
     Active Substance: SELENIUM
  42. SILVADENE [Concomitant]
     Active Substance: SILVER SULFADIAZINE
  43. NEXIUM [Suspect]
     Active Substance: ESOMEPRAZOLE MAGNESIUM
     Indication: GASTROOESOPHAGEAL REFLUX DISEASE
     Dosage: 40 MG DAILY, NEXIUM OTC
     Route: 048
  44. TAMOXIFEN [Suspect]
     Active Substance: TAMOXIFEN
     Route: 048
  45. GABITRIL [Concomitant]
     Active Substance: TIAGABINE HYDROCHLORIDE
  46. NEURONTIN [Concomitant]
     Active Substance: GABAPENTIN
  47. OXYCONTIN [Concomitant]
     Active Substance: OXYCODONE HYDROCHLORIDE
  48. IRON [Concomitant]
     Active Substance: IRON
  49. NEXIUM [Suspect]
     Active Substance: ESOMEPRAZOLE MAGNESIUM
     Indication: DYSPEPSIA
     Route: 048
     Dates: start: 2002
  50. NEXIUM [Suspect]
     Active Substance: ESOMEPRAZOLE MAGNESIUM
     Indication: GASTROOESOPHAGEAL REFLUX DISEASE
     Route: 048
     Dates: start: 201211
  51. LEVOTHYROXINE. [Concomitant]
     Active Substance: LEVOTHYROXINE
     Indication: THYROID DISORDER
     Dosage: 137 NCQ
     Route: 065
  52. VITAMIN D3 [Concomitant]
     Active Substance: CHOLECALCIFEROL
     Indication: BONE DISORDER
     Dosage: 5000 DAILY
     Route: 065
     Dates: start: 201412
  53. GLUCOSAMINE CHONDROITIN PLUS [Concomitant]
  54. IRON [Concomitant]
     Active Substance: IRON
  55. RESTORIL [Concomitant]
     Active Substance: TEMAZEPAM
  56. FOLIC ACID. [Concomitant]
     Active Substance: FOLIC ACID
  57. ARIMIDEX [Suspect]
     Active Substance: ANASTROZOLE
     Indication: BREAST CANCER STAGE III
     Dosage: BRAND ARIMIDEX
     Route: 048
  58. NEXIUM [Suspect]
     Active Substance: ESOMEPRAZOLE MAGNESIUM
     Indication: DYSPEPSIA
     Route: 048
  59. BACTROBAN [Concomitant]
     Active Substance: MUPIROCIN\MUPIROCIN CALCIUM
  60. LOW DOSE ASPIRIN [Concomitant]
     Active Substance: ASPIRIN
  61. CHLORTHALIDONE. [Concomitant]
     Active Substance: CHLORTHALIDONE
     Indication: BLOOD PRESSURE ABNORMAL
     Route: 065
     Dates: start: 2013
  62. SAME [Concomitant]
     Indication: BONE DISORDER
     Route: 065
     Dates: start: 201412
  63. EFFER K [Concomitant]

REACTIONS (27)
  - Salivary gland neoplasm [Unknown]
  - Pain in extremity [Unknown]
  - Blood test abnormal [Unknown]
  - Fatigue [Unknown]
  - Pain [Unknown]
  - Anaemia [Unknown]
  - Off label use [Unknown]
  - Breast cancer stage III [Unknown]
  - Hypocalcaemia [Unknown]
  - Autoimmune thyroiditis [Unknown]
  - Lymphadenopathy [Unknown]
  - Bone pain [Unknown]
  - Neck mass [Unknown]
  - Hypothyroidism [Unknown]
  - Benign gastrointestinal neoplasm [Unknown]
  - Tumour marker increased [Unknown]
  - Oedema peripheral [Unknown]
  - Headache [Unknown]
  - Feeling abnormal [Unknown]
  - Malaise [Unknown]
  - Breast cancer female [Unknown]
  - Musculoskeletal pain [Unknown]
  - Bone loss [Unknown]
  - Bone disorder [Unknown]
  - Thyroid disorder [Unknown]
  - Tooth loss [Unknown]
  - Arthralgia [Unknown]

NARRATIVE: CASE EVENT DATE: 2002
